FAERS Safety Report 6249586-5 (Version None)
Quarter: 2009Q2

REPORT INFORMATION
  Report Type: 
  Country: None (occurrence: None)
  Receive Date: 20090629
  Receipt Date: 20090526
  Transmission Date: 20091009
  Serious: No
  Sender: FDA-Public Use
  Company Number: US-BAYER-200911640BCC

PATIENT
  Sex: Female
  Weight: 52 kg

DRUGS (1)
  1. ALEVE (CAPLET) [Suspect]
     Indication: ARTHRALGIA
     Dosage: UNIT DOSE: 220 MG
     Route: 048
     Dates: start: 20090522, end: 20090524

REACTIONS (5)
  - ASTHENIA [None]
  - DIARRHOEA [None]
  - LISTLESS [None]
  - NAUSEA [None]
  - VOMITING [None]
